FAERS Safety Report 11935033 (Version 2)
Quarter: 2016Q1

REPORT INFORMATION
  Report Type: Spontaneous
  Country: GB (occurrence: GB)
  Receive Date: 20160121
  Receipt Date: 20160222
  Transmission Date: 20160526
  Serious: Yes (Other)
  Sender: FDA-Public Use
  Company Number: GB-BIOGEN-2015BI152140

PATIENT
  Sex: Female

DRUGS (6)
  1. FERROUS FUMERATE [Concomitant]
     Active Substance: FERROUS FUMARATE
     Indication: ANAEMIA
     Route: 065
  2. FERROUS FUMERATE [Concomitant]
     Active Substance: FERROUS FUMARATE
     Indication: VITAMIN D DECREASED
  3. TECFIDERA [Suspect]
     Active Substance: DIMETHYL FUMARATE
     Route: 048
     Dates: end: 201512
  4. TECFIDERA [Suspect]
     Active Substance: DIMETHYL FUMARATE
     Indication: MULTIPLE SCLEROSIS
     Route: 048
     Dates: start: 20150112, end: 20151115
  5. CITALOPRAM [Concomitant]
     Active Substance: CITALOPRAM HYDROBROMIDE
     Indication: PRODUCT USED FOR UNKNOWN INDICATION
     Route: 065
  6. VITAMIN D [Concomitant]
     Active Substance: CHOLECALCIFEROL
     Indication: VITAMIN D DECREASED
     Route: 065

REACTIONS (10)
  - Fatigue [Unknown]
  - Flushing [Unknown]
  - Feeling abnormal [Unknown]
  - Urinary tract infection [Unknown]
  - Vitamin D deficiency [Unknown]
  - Nasopharyngitis [Unknown]
  - Lymphopenia [Unknown]
  - Lower respiratory tract infection [Unknown]
  - Anaemia [Unknown]
  - Gastrointestinal disorder [Unknown]
